FAERS Safety Report 18623693 (Version 2)
Quarter: 2020Q4

REPORT INFORMATION
  Report Type: Spontaneous
  Country: US (occurrence: US)
  Receive Date: 20201216
  Receipt Date: 20201217
  Transmission Date: 20210114
  Serious: Yes (Other)
  Sender: FDA-Public Use
  Company Number: US-BAYER-2020-271064

PATIENT
  Age: 53 Year
  Sex: Female

DRUGS (1)
  1. MIRENA [Suspect]
     Active Substance: LEVONORGESTREL
     Dosage: 20 ?G PER DAY, CONTINUOUSLY
     Route: 015
     Dates: end: 20201202

REACTIONS (4)
  - Device use issue [None]
  - Device breakage [Recovered/Resolved]
  - Complication of device removal [None]
  - Cervical polyp [None]

NARRATIVE: CASE EVENT DATE: 20201117
